FAERS Safety Report 7995500-1 (Version None)
Quarter: 2011Q4

REPORT INFORMATION
  Report Type: 
  Country: None (occurrence: None)
  Receive Date: 20111220
  Receipt Date: 20111219
  Transmission Date: 20120403
  Serious: Yes (Hospitalization)
  Sender: FDA-Public Use
  Company Number: US-PFIZER INC-2011307989

PATIENT
  Sex: Female
  Weight: 90.7 kg

DRUGS (3)
  1. NOVOLOG [Concomitant]
     Indication: DIABETES MELLITUS
     Dosage: 30 IU, DAILY
  2. LANTUS [Concomitant]
     Indication: DIABETES MELLITUS
     Dosage: 30 IU, DAILY
  3. CHANTIX [Suspect]
     Indication: SMOKING CESSATION THERAPY
     Dosage: 0.5 MG, DAILY
     Dates: start: 20111201, end: 20111201

REACTIONS (1)
  - HALLUCINATION [None]
